FAERS Safety Report 6493694-0 (Version None)
Quarter: 2009Q4

REPORT INFORMATION
  Report Type: 
  Country: None (occurrence: None)
  Receive Date: 20091214
  Receipt Date: 20091202
  Transmission Date: 20100525
  Serious: Yes (Other)
  Sender: FDA-Public Use
  Company Number: B0614646A

PATIENT
  Age: 46 Year
  Sex: Male

DRUGS (4)
  1. FLUTICASONE [Suspect]
     Dosage: 100MCG PER DAY
     Route: 055
  2. RITONAVIR [Suspect]
  3. ATAZANAVIR [Suspect]
  4. ANTIRETROVIRAL MEDICATIONS [Suspect]

REACTIONS (1)
  - CUSHING'S SYNDROME [None]
